FAERS Safety Report 4292368-4 (Version None)
Quarter: 2004Q1

REPORT INFORMATION
  Report Type: 
  Country: None (occurrence: None)
  Receive Date: 20040126
  Receipt Date: 20031009
  Transmission Date: 20041129
  Serious: No
  Sender: FDA-Public Use
  Company Number: USA031049519

PATIENT
  Age: 74 Year
  Sex: Female

DRUGS (6)
  1. FORTEO [Suspect]
     Indication: OSTEOPOROSIS
     Dates: start: 20030501
  2. LIPITOR [Concomitant]
  3. CALCIUM [Concomitant]
  4. ANTIBIOTICS [Concomitant]
     Indication: PNEUMONIA
  5. HIGH BLOOD PRESSURE PILL [Concomitant]
     Indication: HYPERTENSION
  6. MULTIVITAMIN [Concomitant]

REACTIONS (4)
  - ASTHENIA [None]
  - DIARRHOEA [None]
  - LIVER FUNCTION TEST ABNORMAL [None]
  - PNEUMONIA [None]
